FAERS Safety Report 14212085 (Version 1)
Quarter: 2017Q4

REPORT INFORMATION
  Report Type: Spontaneous
  Country: US (occurrence: US)
  Receive Date: 20171121
  Receipt Date: 20171121
  Transmission Date: 20180321
  Serious: Yes (Other)
  Sender: FDA-Public Use
  Company Number: None

PATIENT
  Age: 46 Year
  Sex: Male
  Weight: 81 kg

DRUGS (3)
  1. KRATOM (MITRAGYNA) [Suspect]
     Active Substance: MITRAGYNINE\HERBALS
     Indication: DEPRESSION
     Dosage: ?          QUANTITY:2 TABLESPOON(S);?
     Route: 048
  2. LVOXYL [Concomitant]
  3. KRATOM (MITRAGYNA) [Suspect]
     Active Substance: MITRAGYNINE\HERBALS
     Indication: ARTHRALGIA
     Dosage: ?          QUANTITY:2 TABLESPOON(S);?
     Route: 048

REACTIONS (11)
  - Drug abuse [None]
  - Tremor [None]
  - Nasopharyngitis [None]
  - Drug withdrawal syndrome [None]
  - Yellow skin [None]
  - Hallucination, auditory [None]
  - Crying [None]
  - Nightmare [None]
  - Loss of personal independence in daily activities [None]
  - Vomiting [None]
  - Nausea [None]

NARRATIVE: CASE EVENT DATE: 20160309
